FAERS Safety Report 10935341 (Version 1)
Quarter: 2015Q1

REPORT INFORMATION
  Report Type: Spontaneous
  Country: US (occurrence: US)
  Receive Date: 20150320
  Receipt Date: 20150320
  Transmission Date: 20150721
  Serious: No
  Sender: FDA-Public Use
  Company Number: US-ASTRAZENECA-2015SE24326

PATIENT
  Sex: Female

DRUGS (1)
  1. NEXIUM [Suspect]
     Active Substance: ESOMEPRAZOLE MAGNESIUM
     Dosage: TWO TIMES A DAY, DOSE UNKNOWN
     Route: 048

REACTIONS (4)
  - Pain [Unknown]
  - Hypophagia [Unknown]
  - Off label use [Unknown]
  - Weight decreased [Unknown]
